FAERS Safety Report 19887284 (Version 3)
Quarter: 2022Q4

REPORT INFORMATION
  Report Type: Spontaneous
  Country: US (occurrence: US)
  Receive Date: 20210927
  Receipt Date: 20221002
  Transmission Date: 20230112
  Serious: Yes (Hospitalization, Other)
  Sender: FDA-Public Use
  Company Number: US-BAXTER-2021BAX029937

PATIENT
  Age: 77 Year
  Sex: Male

DRUGS (20)
  1. CYCLOPHOSPHAMIDE [Suspect]
     Active Substance: CYCLOPHOSPHAMIDE
     Indication: Adult T-cell lymphoma/leukaemia
     Dosage: 750 MG/M2,PRN
     Route: 065
  2. DOXORUBICIN [Suspect]
     Active Substance: DOXORUBICIN
     Indication: Adult T-cell lymphoma/leukaemia
     Dosage: UNK
     Route: 065
  3. ONCOVIN [Suspect]
     Active Substance: VINCRISTINE SULFATE
     Indication: Adult T-cell lymphoma/leukaemia
     Dosage: 1 MG, CYCLICAL, DOSE REDUCED; CYCLICAL
     Route: 065
  4. PREDNISONE [Suspect]
     Active Substance: PREDNISONE
     Indication: Adult T-cell lymphoma/leukaemia
     Dosage: 100 MG, PM, 21 DAY CYCLE
     Route: 065
  5. PREDNISONE [Suspect]
     Active Substance: PREDNISONE
     Dosage: 500 MG, CYCLICAL
     Route: 065
  6. PREDNISONE [Suspect]
     Active Substance: PREDNISONE
     Dosage: 500 MG, 21-DAY CYCLE PREDNISONE 100MG (FOR 5DAYS)
     Route: 065
  7. ZIDOVUDINE [Concomitant]
     Active Substance: ZIDOVUDINE
     Indication: Human T-cell lymphotropic virus type I infection
     Dosage: 250 MILLIGRAM,BID
     Route: 065
  8. ZIDOVUDINE [Concomitant]
     Active Substance: ZIDOVUDINE
     Dosage: 250 MG, BID, BIS IN DIE (BID) WAS INITIATED (UPON RETURN OF HTLV-1 RESULTS) TO REDUCE HTLV-1 BURDEN
     Route: 065
  9. PRAVASTATIN [Concomitant]
     Active Substance: PRAVASTATIN
     Indication: Hypercholesterolaemia
     Dosage: 40 MG, DAILY
     Route: 065
  10. URSODIOL [Concomitant]
     Active Substance: URSODIOL
     Indication: Hyperbilirubinaemia
     Dosage: 300 MG, DAILY
     Route: 048
  11. RIFAXIMIN [Concomitant]
     Active Substance: RIFAXIMIN
     Indication: Hepatic encephalopathy
     Dosage: 550 MILLIGRAM,BID
     Route: 048
  12. RIFAXIMIN [Concomitant]
     Active Substance: RIFAXIMIN
     Indication: Asterixis
     Dosage: 550 MG, BID
     Route: 048
  13. RIFAXIMIN [Concomitant]
     Active Substance: RIFAXIMIN
     Dosage: 550 MG
     Route: 048
  14. FINASTERIDE [Concomitant]
     Active Substance: FINASTERIDE
     Indication: Benign prostatic hyperplasia
     Dosage: 5 MG, DAILY
     Route: 065
  15. LEVOTHYROXINE [Concomitant]
     Active Substance: LEVOTHYROXINE
     Indication: Hypothyroidism
     Dosage: 75 MCG, DAILY
     Route: 065
  16. DOXAZOSIN [Concomitant]
     Active Substance: DOXAZOSIN MESYLATE
     Indication: Benign prostatic hyperplasia
     Dosage: 4 MG, DAILY
     Route: 065
  17. LACTULOSE [Concomitant]
     Active Substance: LACTULOSE
     Indication: Asterixis
     Dosage: 20 GRAM,3X A DAY
     Route: 048
  18. LACTULOSE [Concomitant]
     Active Substance: LACTULOSE
     Indication: Hepatic encephalopathy
     Dosage: 20 GRAM,3X A DAY, TER IN DIE
     Route: 048
  19. LACTULOSE [Concomitant]
     Active Substance: LACTULOSE
     Dosage: 20 G
     Route: 048
  20. cholestyramine, aspartame [Concomitant]
     Indication: Hyperbilirubinaemia
     Dosage: 4 G, DAILY
     Route: 048

REACTIONS (3)
  - Pancytopenia [Recovering/Resolving]
  - Myelosuppression [Recovering/Resolving]
  - Anaemia [Recovering/Resolving]
